FAERS Safety Report 11270489 (Version 1)
Quarter: 2015Q3

REPORT INFORMATION
  Report Type: Spontaneous
  Country: US (occurrence: US)
  Receive Date: 20150714
  Receipt Date: 20150714
  Transmission Date: 20151125
  Serious: No
  Sender: FDA-Public Use
  Company Number: US-009507513-1507USA000148

PATIENT
  Age: 43 Year
  Sex: Female

DRUGS (10)
  1. LORATADINE. [Concomitant]
     Active Substance: LORATADINE
  2. ZETIA [Suspect]
     Active Substance: EZETIMIBE
     Dosage: 10 MG, QD
     Route: 048
     Dates: start: 20150619, end: 2015
  3. NASONEX [Concomitant]
     Active Substance: MOMETASONE FUROATE
  4. VENTOLIN [Concomitant]
     Active Substance: ALBUTEROL SULFATE
  5. ASPIRIN. [Concomitant]
     Active Substance: ASPIRIN
  6. ADVAIR HFA [Concomitant]
     Active Substance: FLUTICASONE PROPIONATE\SALMETEROL XINAFOATE
  7. ZETIA [Suspect]
     Active Substance: EZETIMIBE
     Indication: BLOOD CHOLESTEROL
     Dosage: 10 MG, QD
     Route: 048
     Dates: start: 201501
  8. LISINOPRIL. [Concomitant]
     Active Substance: LISINOPRIL
  9. ZETIA [Suspect]
     Active Substance: EZETIMIBE
     Dosage: UNK
  10. BYSTOLIC [Concomitant]
     Active Substance: NEBIVOLOL HYDROCHLORIDE

REACTIONS (5)
  - Abdominal discomfort [Unknown]
  - Diarrhoea [Unknown]
  - Abdominal discomfort [Recovered/Resolved]
  - Drug dose omission [Unknown]
  - Diarrhoea [Recovered/Resolved]

NARRATIVE: CASE EVENT DATE: 2015
